FAERS Safety Report 6081254-5 (Version None)
Quarter: 2009Q1

REPORT INFORMATION
  Report Type: 
  Country: None (occurrence: None)
  Receive Date: 20090217
  Receipt Date: 20090205
  Transmission Date: 20090719
  Serious: Yes (Other)
  Sender: FDA-Public Use
  Company Number: US-JNJCH-2009003618

PATIENT
  Age: 34 Year
  Sex: Male
  Weight: 70.3 kg

DRUGS (1)
  1. LISTERINE WHITENING PRE-BRUSH RINSE [Suspect]
     Indication: DENTAL CARE
     Dosage: TEXT:HALF CAPFUL TWICE A DAY
     Route: 048

REACTIONS (5)
  - ACCIDENTAL EXPOSURE [None]
  - APPLICATION SITE BURN [None]
  - OROPHARYNGEAL PAIN [None]
  - PHARYNGEAL OEDEMA [None]
  - THROAT IRRITATION [None]
